FAERS Safety Report 5060833-8 (Version None)
Quarter: 2006Q3

REPORT INFORMATION
  Report Type: 
  Country: None (occurrence: None)
  Receive Date: 20060725
  Receipt Date: 20060720
  Transmission Date: 20061208
  Serious: Yes (Hospitalization)
  Sender: FDA-Public Use
  Company Number: US-GLAXOSMITHKLINE-A0613009A

PATIENT
  Age: 40 Year
  Sex: Female

DRUGS (6)
  1. COREG [Suspect]
     Indication: HYPERTENSION
     Route: 048
     Dates: start: 20060401
  2. VASOTEC [Suspect]
     Dosage: 10MG PER DAY
     Route: 048
     Dates: start: 20060501
  3. POTASSIUM [Concomitant]
  4. DEMADEX [Concomitant]
  5. BENADRYL [Concomitant]
  6. KLONOPIN [Concomitant]

REACTIONS (6)
  - BLOOD PRESSURE INADEQUATELY CONTROLLED [None]
  - CARDIAC FUNCTION TEST ABNORMAL [None]
  - DIZZINESS [None]
  - DRUG INEFFECTIVE [None]
  - DYSPNOEA [None]
  - FATIGUE [None]
